FAERS Safety Report 8232684-4 (Version None)
Quarter: 2012Q1

REPORT INFORMATION
  Report Type: 
  Country: None (occurrence: None)
  Receive Date: 20120323
  Receipt Date: 20120309
  Transmission Date: 20120608
  Serious: Yes (Other)
  Sender: FDA-Public Use
  Company Number: PHHY2012JP017712

PATIENT
  Sex: Male

DRUGS (2)
  1. CYCLOSPORINE [Suspect]
     Dosage: 150 MG, UNK
  2. PREDNISOLONE [Concomitant]
     Dosage: 5 MG, UNK

REACTIONS (5)
  - LYMPHOCYTIC INFILTRATION [None]
  - DIARRHOEA [None]
  - FREQUENT BOWEL MOVEMENTS [None]
  - EXCESSIVE GRANULATION TISSUE [None]
  - COLITIS MICROSCOPIC [None]
